FAERS Safety Report 13388905 (Version 1)
Quarter: 2017Q1

REPORT INFORMATION
  Report Type: Spontaneous
  Country: BG (occurrence: BG)
  Receive Date: 20170330
  Receipt Date: 20170330
  Transmission Date: 20170429
  Serious: Yes (Death)
  Sender: FDA-Public Use
  Company Number: BG-BAYER-2017-053773

PATIENT
  Age: 70 Year
  Sex: Male

DRUGS (3)
  1. ATROPIN [Concomitant]
     Active Substance: ATROPINE
     Indication: GLAUCOMA
  2. STIVARGA [Suspect]
     Active Substance: REGORAFENIB
     Indication: COLORECTAL CANCER METASTATIC
     Dosage: UNK
     Route: 048
     Dates: start: 201603, end: 201606
  3. STIVARGA [Suspect]
     Active Substance: REGORAFENIB
     Indication: COLORECTAL CANCER METASTATIC
     Dosage: UNK
     Route: 048
     Dates: start: 201602, end: 201603

REACTIONS (6)
  - Carcinoembryonic antigen increased [Fatal]
  - Metastases to abdominal wall [Fatal]
  - Carbohydrate antigen 19-9 increased [Fatal]
  - Colorectal cancer metastatic [Fatal]
  - Metastases to liver [Fatal]
  - Metastases to lung [Fatal]

NARRATIVE: CASE EVENT DATE: 201607
